FAERS Safety Report 25950625 (Version 1)
Quarter: 2025Q4

REPORT INFORMATION
  Report Type: Spontaneous
  Country: CA (occurrence: CA)
  Receive Date: 20251023
  Receipt Date: 20251023
  Transmission Date: 20260118
  Serious: Yes (Other)
  Sender: JOHNSON AND JOHNSON
  Company Number: CA-JNJFOC-20251022123

PATIENT
  Age: 41 Year
  Sex: Male

DRUGS (1)
  1. USTEKINUMAB [Suspect]
     Active Substance: USTEKINUMAB
     Indication: Psoriasis
     Route: 058

REACTIONS (8)
  - Chromaturia [Unknown]
  - Impaired healing [Unknown]
  - Insomnia [Unknown]
  - Muscle spasms [Unknown]
  - Paraesthesia [Unknown]
  - Renal pain [Unknown]
  - Urine odour abnormal [Unknown]
  - Fatigue [Unknown]
